FAERS Safety Report 19904962 (Version 1)
Quarter: 2021Q3

REPORT INFORMATION
  Report Type: Spontaneous
  Country: US (occurrence: US)
  Receive Date: 20210930
  Receipt Date: 20210930
  Transmission Date: 20211014
  Serious: Yes (Life-Threatening, Hospitalization)
  Sender: FDA-Public Use
  Company Number: None

PATIENT
  Age: 57 Year
  Sex: Male
  Weight: 78.5 kg

DRUGS (16)
  1. CEFEPIME [Concomitant]
     Active Substance: CEFEPIME HYDROCHLORIDE
     Dates: start: 20210902, end: 20210911
  2. FAMOTIDINE. [Concomitant]
     Active Substance: FAMOTIDINE
     Dates: start: 20210828, end: 20210930
  3. ARGATROBAN. [Concomitant]
     Active Substance: ARGATROBAN
     Dates: start: 20210912, end: 20210913
  4. PROPOFOL. [Concomitant]
     Active Substance: PROPOFOL
     Dates: start: 20210904, end: 20210930
  5. TRAZODONE [Concomitant]
     Active Substance: TRAZODONE HYDROCHLORIDE
     Dates: start: 20210828, end: 20210904
  6. VENLAFAXINE [Concomitant]
     Active Substance: VENLAFAXINE HYDROCHLORIDE
     Dates: start: 20210828, end: 20210930
  7. CISATRACURIUM. [Concomitant]
     Active Substance: CISATRACURIUM
     Dates: start: 20210904, end: 20210930
  8. REMDESIVIR. [Concomitant]
     Active Substance: REMDESIVIR
     Dates: start: 20210830, end: 20210902
  9. BARICITINIB. [Suspect]
     Active Substance: BARICITINIB
     Indication: COVID-19
     Route: 048
     Dates: start: 20210830, end: 20210912
  10. DOXYCYCLINE. [Concomitant]
     Active Substance: DOXYCYCLINE
     Dates: start: 20210830, end: 20210902
  11. CEFTRIAXONE. [Concomitant]
     Active Substance: CEFTRIAXONE
     Dates: start: 20210830, end: 20210902
  12. MIDAZOLAM. [Concomitant]
     Active Substance: MIDAZOLAM
     Dates: start: 20210907, end: 20210930
  13. DEXAMETHASONE. [Concomitant]
     Active Substance: DEXAMETHASONE
     Dates: start: 20210828, end: 20210930
  14. DIVALPROEX SODIUM. [Concomitant]
     Active Substance: DIVALPROEX SODIUM
     Dates: start: 20210828, end: 20210902
  15. HEPARIN [Concomitant]
     Active Substance: HEPARIN SODIUM
     Dates: start: 20210828, end: 20210901
  16. VANCOMYCIN [Concomitant]
     Active Substance: VANCOMYCIN
     Dates: start: 20210902, end: 20210911

REACTIONS (3)
  - Lymphocyte count decreased [None]
  - Trichosporon infection [None]
  - Therapy interrupted [None]

NARRATIVE: CASE EVENT DATE: 20210917
